FAERS Safety Report 11089972 (Version 1)
Quarter: 2015Q2

REPORT INFORMATION
  Report Type: Spontaneous
  Country: US (occurrence: US)
  Receive Date: 20150505
  Receipt Date: 20150505
  Transmission Date: 20150821
  Serious: No
  Sender: FDA-Public Use
  Company Number: US-BAYER-2015-183064

PATIENT
  Age: 74 Year
  Sex: Female
  Weight: 70 kg

DRUGS (3)
  1. IBUPROFEN AL [Suspect]
     Active Substance: IBUPROFEN
     Indication: SPONDYLITIS
     Dosage: 200 MG, 6ID
     Route: 048
     Dates: start: 20150309
  2. ALEVE [Suspect]
     Active Substance: NAPROXEN SODIUM
     Indication: SPONDYLITIS
     Dosage: 1 DF, BID
     Route: 048
     Dates: start: 201503
  3. CELEBREX [Suspect]
     Active Substance: CELECOXIB
     Dosage: 200 MG, QD
     Route: 048
     Dates: end: 201503

REACTIONS (4)
  - Adverse event [Unknown]
  - Drug ineffective [None]
  - Constipation [Recovered/Resolved]
  - Medication error [Unknown]

NARRATIVE: CASE EVENT DATE: 201503
